FAERS Safety Report 26036009 (Version 1)
Quarter: 2025Q4

REPORT INFORMATION
  Report Type: Spontaneous
  Country: US (occurrence: US)
  Receive Date: 20251112
  Receipt Date: 20251112
  Transmission Date: 20260117
  Serious: Yes (Other)
  Sender: PFIZER
  Company Number: US-PFIZER INC-202500219536

PATIENT
  Age: 75 Year
  Sex: Male
  Weight: 78.02 kg

DRUGS (3)
  1. INLYTA [Suspect]
     Active Substance: AXITINIB
     Indication: Neoplasm malignant
     Dosage: TWO A DAY, ONE IN THE MORNING AND ONE IN THE EVENING
     Route: 048
     Dates: start: 2025, end: 2025
  2. LANTUS [Concomitant]
     Active Substance: INSULIN GLARGINE
     Indication: Diabetes mellitus
     Dosage: 12 UNITS A DAY (LONG LASTING)
  3. NOVOLOG [Concomitant]
     Active Substance: INSULIN ASPART
     Indication: Diabetes mellitus
     Dosage: 7 UNITS ON THE MORNING, 11 AT LUNCH AND 8 AT DINNER

REACTIONS (1)
  - Carditis [Not Recovered/Not Resolved]

NARRATIVE: CASE EVENT DATE: 20251001
